FAERS Safety Report 7005112-4 (Version None)
Quarter: 2010Q3

REPORT INFORMATION
  Report Type: 
  Country: None (occurrence: None)
  Receive Date: 20100921
  Receipt Date: 20100802
  Transmission Date: 20110219
  Serious: No
  Sender: FDA-Public Use
  Company Number: US-JNJFOC-20100704852

PATIENT
  Sex: Female
  Weight: 84.82 kg

DRUGS (3)
  1. INVEGA SUSTENNA [Suspect]
     Indication: SCHIZOPHRENIA
     Route: 030
  2. GEODON [Concomitant]
     Indication: PSYCHOTIC DISORDER
  3. CYMBALTA [Concomitant]
     Indication: DEPRESSION

REACTIONS (1)
  - INJECTION SITE NODULE [None]
